FAERS Safety Report 11786200 (Version 1)
Quarter: 2015Q4

REPORT INFORMATION
  Report Type: Spontaneous
  Country: ES (occurrence: ES)
  Receive Date: 20151130
  Receipt Date: 20151130
  Transmission Date: 20160305
  Serious: Yes (Hospitalization, Other)
  Sender: FDA-Public Use
  Company Number: ES-DEP_13127_2015

PATIENT
  Age: 63 Year
  Sex: Male

DRUGS (11)
  1. FENTANYL. [Concomitant]
     Active Substance: FENTANYL
     Dosage: DF
  2. METOCLOPRAMIDE. [Concomitant]
     Active Substance: METOCLOPRAMIDE
     Indication: PROPHYLAXIS OF NAUSEA AND VOMITING
     Dosage: DF
     Dates: start: 201402
  3. ABIRATERONE [Concomitant]
     Active Substance: ABIRATERONE
     Indication: PROSTATE CANCER
     Dosage: DF
     Dates: start: 201404
  4. FENTANYL. [Concomitant]
     Active Substance: FENTANYL
     Indication: BACK PAIN
     Dosage: DF
     Dates: end: 201402
  5. FENTANYL. [Concomitant]
     Active Substance: FENTANYL
     Indication: PAIN
     Dosage: DF
     Dates: start: 201402
  6. PALEXIA [Suspect]
     Active Substance: TAPENTADOL HYDROCHLORIDE
     Route: 048
     Dates: start: 201404
  7. FENTANYL. [Concomitant]
     Active Substance: FENTANYL
     Dosage: DF
  8. PALEXIA [Suspect]
     Active Substance: TAPENTADOL HYDROCHLORIDE
     Route: 048
     Dates: start: 201403
  9. PALEXIA [Suspect]
     Active Substance: TAPENTADOL HYDROCHLORIDE
     Route: 048
     Dates: start: 201402
  10. PALEXIA [Suspect]
     Active Substance: TAPENTADOL HYDROCHLORIDE
     Route: 048
  11. PALEXIA [Suspect]
     Active Substance: TAPENTADOL HYDROCHLORIDE
     Indication: BACK PAIN
     Route: 048

REACTIONS (3)
  - Constipation [Recovered/Resolved]
  - Overdose [Unknown]
  - Faecaloma [Recovered/Resolved]

NARRATIVE: CASE EVENT DATE: 201403
